FAERS Safety Report 26108875 (Version 1)
Quarter: 2025Q4

REPORT INFORMATION
  Report Type: Spontaneous
  Country: US (occurrence: None)
  Receive Date: 20251201
  Receipt Date: 20251201
  Transmission Date: 20260118
  Serious: No
  Sender: APOTEX
  Company Number: US-APOTEX-2025AP032438

PATIENT
  Sex: Female

DRUGS (2)
  1. BUTORPHANOL [4]
     Active Substance: BUTORPHANOL
     Indication: Product used for unknown indication
     Dosage: UNK
     Route: 065
  2. BUTORPHANOL [4]
     Active Substance: BUTORPHANOL

REACTIONS (2)
  - Product dose omission issue [Unknown]
  - Product delivery mechanism issue [Unknown]

NARRATIVE: CASE EVENT DATE: 20250101
